FAERS Safety Report 16271876 (Version 1)
Quarter: 2019Q2

REPORT INFORMATION
  Report Type: Spontaneous
  Country: FR (occurrence: FR)
  Receive Date: 20190503
  Receipt Date: 20190503
  Transmission Date: 20190711
  Serious: Yes (Hospitalization)
  Sender: FDA-Public Use
  Company Number: FR-MYLANLABS-2019M1042176

PATIENT
  Age: 25 Year
  Sex: Female
  Weight: 65 kg

DRUGS (5)
  1. PROPOFOL. [Suspect]
     Active Substance: PROPOFOL
     Indication: GENERAL ANAESTHESIA
     Dosage: 11 DOSAGE FORM
     Route: 042
     Dates: start: 20170531
  2. SUFENTANIL [Suspect]
     Active Substance: SUFENTANIL
     Indication: GENERAL ANAESTHESIA
     Dosage: DOSAGE FORM
     Route: 042
     Dates: start: 20170531
  3. ZINNAT                             /00454602/ [Suspect]
     Active Substance: CEFUROXIME SODIUM
     Indication: ANTIBIOTIC PROPHYLAXIS
     Dosage: 11 DOSAGE FORM
     Route: 042
     Dates: start: 20170531
  4. DEXAMETHASONE. [Suspect]
     Active Substance: DEXAMETHASONE
     Indication: PROPHYLAXIS OF NAUSEA AND VOMITING
     Dosage: 11 DOSAGE FORM
     Route: 042
     Dates: start: 20170531
  5. MIVACRON [Suspect]
     Active Substance: MIVACURIUM CHLORIDE
     Indication: GENERAL ANAESTHESIA
     Dosage: 11 DOSAGE FORM
     Route: 042
     Dates: start: 20170531

REACTIONS (1)
  - Anaphylactoid shock [Recovered/Resolved]

NARRATIVE: CASE EVENT DATE: 20170531
